FAERS Safety Report 4900199-4 (Version None)
Quarter: 2006Q1

REPORT INFORMATION
  Report Type: 
  Country: None (occurrence: None)
  Receive Date: 20060203
  Receipt Date: 20050928
  Transmission Date: 20060701
  Serious: No
  Sender: FDA-Public Use
  Company Number: US-GLAXOSMITHKLINE-A0576215A

PATIENT
  Age: 62 Year
  Sex: Female

DRUGS (8)
  1. ARIXTRA [Suspect]
     Dosage: 1INJ PER DAY
     Route: 058
     Dates: start: 20050921
  2. INDERAL [Concomitant]
  3. LOTREL [Concomitant]
  4. HYDROCHLOROTHIAZIDE [Concomitant]
  5. SYNTHROID [Concomitant]
  6. PREVACID [Concomitant]
  7. PRILOSEC [Concomitant]
  8. MOBIC [Concomitant]

REACTIONS (10)
  - ANXIETY [None]
  - DEHYDRATION [None]
  - DIARRHOEA [None]
  - DRUG INTERACTION [None]
  - EATING DISORDER [None]
  - FORMICATION [None]
  - INSOMNIA [None]
  - NAUSEA [None]
  - PAROSMIA [None]
  - VISION BLURRED [None]
